FAERS Safety Report 15757033 (Version 2)
Quarter: 2019Q2

REPORT INFORMATION
  Report Type: Spontaneous
  Country: US (occurrence: US)
  Receive Date: 20181224
  Receipt Date: 20190509
  Transmission Date: 20190711
  Serious: No
  Sender: FDA-Public Use
  Company Number: US-SHIRE-US201849416

PATIENT
  Sex: Female

DRUGS (2)
  1. XIIDRA [Suspect]
     Active Substance: LIFITEGRAST
     Indication: DRY EYE
     Route: 047
  2. XIIDRA [Suspect]
     Active Substance: LIFITEGRAST
     Indication: VISION BLURRED
     Dosage: UNK
     Route: 047

REACTIONS (7)
  - Dysgeusia [Recovered/Resolved]
  - Instillation site reaction [Unknown]
  - Instillation site pain [Unknown]
  - Product quality issue [Unknown]
  - Upper-airway cough syndrome [Unknown]
  - Tongue coated [Unknown]
  - Vision blurred [Unknown]

NARRATIVE: CASE EVENT DATE: 20181116
